FAERS Safety Report 11308031 (Version 1)
Quarter: 2015Q3

REPORT INFORMATION
  Report Type: Spontaneous
  Country: US (occurrence: US)
  Receive Date: 20150724
  Receipt Date: 20150724
  Transmission Date: 20151125
  Serious: Yes (Other)
  Sender: FDA-Public Use
  Company Number: US-009507513-1507USA010356

PATIENT
  Sex: Male

DRUGS (3)
  1. ZOFRAN [Suspect]
     Active Substance: ONDANSETRON HYDROCHLORIDE
     Indication: NAUSEA
  2. JANUMET XR [Suspect]
     Active Substance: METFORMIN HYDROCHLORIDE\SITAGLIPTIN PHOSPHATE
     Indication: DIABETES MELLITUS
     Dosage: DOSE 1000/100 MG, UNK
     Route: 048
  3. LYRICA [Suspect]
     Active Substance: PREGABALIN
     Indication: DIABETES MELLITUS
     Dosage: 100 MG, UNK

REACTIONS (14)
  - Chest pain [Unknown]
  - Dysuria [Unknown]
  - Emotional distress [Unknown]
  - Disturbance in attention [Unknown]
  - Dizziness [Unknown]
  - Urinary tract infection [Unknown]
  - Constipation [Unknown]
  - Blindness [Unknown]
  - Anxiety [Unknown]
  - Pain [Unknown]
  - Oral fungal infection [Unknown]
  - Blood glucose increased [Unknown]
  - Anorectal infection [Unknown]
  - Heart rate irregular [Unknown]
